FAERS Safety Report 21482927 (Version 2)
Quarter: 2022Q4

REPORT INFORMATION
  Report Type: Spontaneous
  Country: GB (occurrence: GB)
  Receive Date: 20221020
  Receipt Date: 20221227
  Transmission Date: 20230113
  Serious: Yes (Hospitalization, Other)
  Sender: FDA-Public Use
  Company Number: None

PATIENT
  Age: 51 Year
  Sex: Male

DRUGS (7)
  1. METHADONE HYDROCHLORIDE [Suspect]
     Active Substance: METHADONE HYDROCHLORIDE
     Indication: Product used for unknown indication
     Dosage: UNK
     Route: 065
  2. MORPHINE SULFATE [Suspect]
     Active Substance: MORPHINE SULFATE
     Indication: Product used for unknown indication
     Dosage: UNK
     Route: 065
  3. PREGABALIN [Suspect]
     Active Substance: PREGABALIN
     Indication: Product used for unknown indication
     Dosage: UNK
     Route: 048
  4. BUPRENORPHINE [Suspect]
     Active Substance: BUPRENORPHINE
     Indication: Product used for unknown indication
     Dosage: UNK
     Route: 065
  5. 11-NOR-9-CARBOXY-.DELTA.9-TETRAHYDROCANNABINOL [Suspect]
     Active Substance: 11-NOR-9-CARBOXY-.DELTA.9-TETRAHYDROCANNABINOL
     Indication: Product used for unknown indication
     Dosage: UNK
     Route: 065
  6. COCAINE [Suspect]
     Active Substance: COCAINE
     Indication: Product used for unknown indication
     Dosage: UNK (SMOKED)
  7. MDMB-4EN-PINACA [Suspect]
     Active Substance: MDMB-4EN-PINACA
     Indication: Product used for unknown indication
     Dosage: UNK
     Route: 065

REACTIONS (8)
  - Depressed level of consciousness [Unknown]
  - Seizure [Unknown]
  - Blood creatine phosphokinase increased [Unknown]
  - Hypotension [Unknown]
  - Tachycardia [Unknown]
  - Intentional product misuse [Unknown]
  - Coma scale abnormal [Unknown]
  - Toxicity to various agents [Unknown]
